FAERS Safety Report 8988537 (Version 1)
Quarter: 2012Q4

REPORT INFORMATION
  Report Type: Spontaneous
  Country: GB (occurrence: None)
  Receive Date: 20121218
  Receipt Date: 20121218
  Transmission Date: 20130627
  Serious: Yes (Hospitalization, Other)
  Sender: FDA-Public Use
  Company Number: AUR-APL-2012-05282

PATIENT
  Age: 92 Year
  Sex: Female

DRUGS (10)
  1. PIPERACILLIN + TAZOBACTAM [Suspect]
     Indication: PNEUMONIA
     Route: 048
     Dates: start: 20121017, end: 20121024
  2. ALENDRONIC ACID [Concomitant]
  3. AMLODIPINE [Concomitant]
  4. ASPIRIN (ACETYLSALICYLIC ACID) [Concomitant]
  5. BETAHISTINE [Concomitant]
  6. CITALOPRAM [Concomitant]
  7. DOXAZOSIN [Concomitant]
  8. OMEPRAZOLE [Concomitant]
  9. PARACETAMOL [Concomitant]
  10. CO-CODAMOL (PANADEINE CO) [Concomitant]

REACTIONS (2)
  - Rash generalised [None]
  - Pruritus [None]
